FAERS Safety Report 12765636 (Version 3)
Quarter: 2016Q4

REPORT INFORMATION
  Report Type: Spontaneous
  Country: FR (occurrence: FR)
  Receive Date: 20160921
  Receipt Date: 20161010
  Transmission Date: 20170207
  Serious: Yes (Hospitalization)
  Sender: FDA-Public Use
  Company Number: PHHY2016FR125003

PATIENT
  Age: 58 Year
  Sex: Male
  Weight: 125 kg

DRUGS (8)
  1. PRETERAX ARGININE [Suspect]
     Active Substance: INDAPAMIDE\PERINDOPRIL ARGININE
     Indication: PULMONARY ARTERIAL HYPERTENSION
     Dosage: 1 DF, DAILY
     Route: 048
     Dates: start: 2015
  2. LASILIX//FUROSEMIDE [Concomitant]
     Indication: OEDEMA PERIPHERAL
     Dosage: 1 DF, DAILY
     Route: 048
     Dates: start: 20160630
  3. TRAMADOL. [Suspect]
     Active Substance: TRAMADOL
     Indication: RHEUMATIC DISORDER
     Dosage: FROM 0 TO 4 DF, DAILY
     Route: 048
     Dates: start: 2015
  4. PROCORALAN [Suspect]
     Active Substance: IVABRADINE
     Indication: CARDIAC FAILURE
     Dosage: 2 DF, DAILY
     Route: 048
     Dates: start: 20160711, end: 20160809
  5. LYRICA [Suspect]
     Active Substance: PREGABALIN
     Indication: TREMOR
     Dosage: 2 DF, DAILY
     Route: 048
     Dates: start: 2015
  6. GLUCOPHAGE [Concomitant]
     Active Substance: METFORMIN HYDROCHLORIDE
     Indication: DIABETES MELLITUS
     Dosage: 850 MG, BID
     Route: 065
     Dates: start: 2014
  7. COSENTYX [Suspect]
     Active Substance: SECUKINUMAB
     Indication: PSORIASIS
     Dosage: UNK
     Route: 058
     Dates: start: 20160725
  8. KARDEGIC [Concomitant]
     Active Substance: ASPIRIN LYSINE
     Indication: DIABETES MELLITUS
     Dosage: 1 DF, DAILY
     Route: 065
     Dates: start: 2014

REACTIONS (6)
  - Aortic stenosis [Unknown]
  - Oedema peripheral [Unknown]
  - Dizziness [Unknown]
  - Loss of consciousness [Unknown]
  - Fatigue [Unknown]
  - Cardiac failure [Recovered/Resolved with Sequelae]

NARRATIVE: CASE EVENT DATE: 201507
